FAERS Safety Report 7109892-9 (Version None)
Quarter: 2010Q4

REPORT INFORMATION
  Report Type: 
  Country: None (occurrence: None)
  Receive Date: 20101118
  Receipt Date: 20101108
  Transmission Date: 20110411
  Serious: Yes (Other)
  Sender: FDA-Public Use
  Company Number: JP-JNJFOC-20101004309

PATIENT
  Age: 32 Year
  Sex: Male

DRUGS (3)
  1. ORTHOCLONE OKT3 [Suspect]
     Indication: LIVER TRANSPLANT REJECTION
     Route: 042
  2. ORTHOCLONE OKT3 [Suspect]
     Route: 042
  3. ORTHOCLONE OKT3 [Suspect]
     Route: 042

REACTIONS (3)
  - DEMYELINATION [None]
  - EPSTEIN-BARR VIRUS TEST POSITIVE [None]
  - MENINGITIS ASEPTIC [None]
